FAERS Safety Report 17056324 (Version 1)
Quarter: 2019Q4

REPORT INFORMATION
  Report Type: Report from Study
  Country: US (occurrence: US)
  Receive Date: 20191121
  Receipt Date: 20191121
  Transmission Date: 20200122
  Serious: No
  Sender: FDA-Public Use
  Company Number: US-IPSEN BIOPHARMACEUTICALS, INC.-2019-21436

PATIENT
  Age: 32 Year

DRUGS (1)
  1. DYSPORT [Suspect]
     Active Substance: ABOBOTULINUMTOXINA
     Indication: MUSCLE SPASTICITY
     Dosage: 460 (FINGER FLEXORS 100, WRIST FLEXORS 120, ELBOW FLEXORS 120 , SHOULDER MUSCLES 120)
     Route: 030

REACTIONS (2)
  - Muscle spasticity [Unknown]
  - Therapeutic response shortened [Unknown]
